FAERS Safety Report 22058757 (Version 2)
Quarter: 2023Q1

REPORT INFORMATION
  Report Type: Spontaneous
  Country: US (occurrence: None)
  Receive Date: 20230303
  Receipt Date: 20230331
  Transmission Date: 20230417
  Serious: Yes (Disabling)
  Sender: FDA-Public Use
  Company Number: US-ROCHE-3292231

PATIENT
  Age: 28 Year
  Sex: Male
  Weight: 72.640 kg

DRUGS (7)
  1. EVRYSDI [Suspect]
     Active Substance: RISDIPLAM
     Indication: Spinal muscular atrophy
     Route: 048
     Dates: start: 2021
  2. EVRYSDI [Suspect]
     Active Substance: RISDIPLAM
     Route: 048
     Dates: start: 202012
  3. VITAMIN D3 [Concomitant]
     Active Substance: CHOLECALCIFEROL
     Route: 048
  4. VITAMIN C [Concomitant]
     Active Substance: ASCORBIC ACID
     Dosage: AS NEEDED
     Route: 048
  5. ZINC [Concomitant]
     Active Substance: ZINC
     Route: 048
  6. MEXILETINE [Concomitant]
     Active Substance: MEXILETINE
     Indication: Muscle spasms
     Route: 048
     Dates: start: 20200710
  7. CHOLECALCIFEROL [Concomitant]
     Active Substance: CHOLECALCIFEROL
     Indication: Vitamin D deficiency
     Dosage: 5000 UNITS
     Route: 048
     Dates: start: 20190718

REACTIONS (4)
  - Femur fracture [Recovering/Resolving]
  - COVID-19 [Not Recovered/Not Resolved]
  - Fall [Unknown]
  - Pain [Not Recovered/Not Resolved]

NARRATIVE: CASE EVENT DATE: 20230213
